FAERS Safety Report 6763047-6 (Version None)
Quarter: 2010Q2

REPORT INFORMATION
  Report Type: 
  Country: None (occurrence: None)
  Receive Date: 20100609
  Receipt Date: 20100528
  Transmission Date: 20101027
  Serious: Yes (Death)
  Sender: FDA-Public Use
  Company Number: DE-PFIZER INC-2010032633

PATIENT
  Age: 56 Year
  Sex: Male
  Weight: 97 kg

DRUGS (9)
  1. BLINDED *NO SUBJECT DRUG [Suspect]
     Indication: CARDIAC FAILURE
     Dosage: UNK
     Route: 048
     Dates: start: 20090216, end: 20100225
  2. BLINDED *PLACEBO [Suspect]
     Indication: CARDIAC FAILURE
     Dosage: UNK
     Route: 048
     Dates: start: 20090216, end: 20100225
  3. EPLERENONE [Suspect]
     Indication: CARDIAC FAILURE
     Dosage: UNK
     Route: 048
     Dates: start: 20090216, end: 20100225
  4. ASPIRIN [Concomitant]
     Dosage: 100 MG, UNK
     Route: 048
     Dates: start: 20081201
  5. METOPROLOL [Concomitant]
     Dosage: UNK
     Route: 048
     Dates: start: 20081223
  6. RAMIPRIL [Concomitant]
     Dosage: UNK
     Route: 048
     Dates: start: 20090501
  7. HYDROCHLOROTHIAZIDE [Concomitant]
     Dosage: UNK
     Route: 048
     Dates: start: 20081201
  8. SIMVASTATIN [Concomitant]
     Dosage: UNK
     Route: 048
     Dates: start: 20081223
  9. TORASEMIDE [Concomitant]
     Dosage: UNK
     Route: 048
     Dates: start: 20081201

REACTIONS (1)
  - SUDDEN CARDIAC DEATH [None]
